FAERS Safety Report 16673521 (Version 4)
Quarter: 2019Q3

REPORT INFORMATION
  Report Type: Spontaneous
  Country: AT (occurrence: AT)
  Receive Date: 20190806
  Receipt Date: 20190919
  Transmission Date: 20191004
  Serious: Yes (Hospitalization, Other)
  Sender: FDA-Public Use
  Company Number: PHHY2019AT176036

PATIENT
  Age: 72 Year
  Sex: Female

DRUGS (30)
  1. DULOXETINE. [Suspect]
     Active Substance: DULOXETINE
     Indication: PRODUCT USED FOR UNKNOWN INDICATION
     Dosage: UNK
     Route: 048
  2. CLOMIPRAMIN [Suspect]
     Active Substance: CLOMIPRAMINE
     Dosage: 12.5 MG, UNK
     Route: 042
  3. CLOMIPRAMIN [Suspect]
     Active Substance: CLOMIPRAMINE
     Dosage: 25 MG, UNK
     Route: 042
  4. CLOMIPRAMINE [Suspect]
     Active Substance: CLOMIPRAMINE
     Indication: PRODUCT USED FOR UNKNOWN INDICATION
     Dosage: 25 MG, QD
     Route: 065
  5. CLOMIPRAMINE [Suspect]
     Active Substance: CLOMIPRAMINE
     Dosage: 25 MG, FREQ: UNK X 1 DAYS
     Route: 065
  6. CLOMIPRAMINE [Suspect]
     Active Substance: CLOMIPRAMINE
     Dosage: 12.5 MG, FREQ: UNK X 1 DAYS
     Route: 065
  7. PREGABALIN. [Suspect]
     Active Substance: PREGABALIN
     Indication: PRODUCT USED FOR UNKNOWN INDICATION
     Route: 065
  8. LITHIUM. [Suspect]
     Active Substance: LITHIUM
     Dosage: UNK
     Route: 065
  9. CLOMIPRAMIN [Suspect]
     Active Substance: CLOMIPRAMINE
     Dosage: UNK
     Route: 048
  10. PREGABALIN. [Suspect]
     Active Substance: PREGABALIN
     Dosage: UNK
     Route: 065
  11. DIAZEPAM. [Suspect]
     Active Substance: DIAZEPAM
     Indication: SEDATION
     Dosage: 24 MG, QD
     Route: 048
  12. AMITRIPTYLINE [Suspect]
     Active Substance: AMITRIPTYLINE
     Indication: INSOMNIA
     Route: 065
  13. CLOMIPRAMIN [Suspect]
     Active Substance: CLOMIPRAMINE
     Dosage: 75 MG, QD
     Route: 048
  14. CLOMIPRAMINE [Suspect]
     Active Substance: CLOMIPRAMINE
     Dosage: UNK
     Route: 048
  15. QUETIAPINE. [Suspect]
     Active Substance: QUETIAPINE
     Indication: PRODUCT USED FOR UNKNOWN INDICATION
     Route: 065
  16. LITHIUM. [Suspect]
     Active Substance: LITHIUM
     Dosage: UNK
     Route: 065
  17. DULOXETINE. [Suspect]
     Active Substance: DULOXETINE
     Dosage: UNK
     Route: 048
  18. ZOLPIDEM [Suspect]
     Active Substance: ZOLPIDEM TARTRATE
     Dosage: UNK
     Route: 065
  19. LAMOTRIGINE. [Suspect]
     Active Substance: LAMOTRIGINE
     Indication: SEDATION
     Route: 065
  20. ENOXAPARIN [Suspect]
     Active Substance: ENOXAPARIN
     Indication: THROMBOSIS PROPHYLAXIS
     Dosage: 40 MG, QD
     Route: 058
  21. MOCLOBEMID [Suspect]
     Active Substance: MOCLOBEMIDE
     Indication: PRODUCT USED FOR UNKNOWN INDICATION
     Route: 065
  22. LITHIUM. [Suspect]
     Active Substance: LITHIUM
     Indication: PRODUCT USED FOR UNKNOWN INDICATION
     Dosage: UNK
     Route: 065
  23. CLOMIPRAMIN [Suspect]
     Active Substance: CLOMIPRAMINE
     Indication: PRODUCT USED FOR UNKNOWN INDICATION
     Dosage: 150 MG, QD
     Route: 048
  24. CLOMIPRAMINE [Suspect]
     Active Substance: CLOMIPRAMINE
     Dosage: 12.5 MG, QD
     Route: 065
  25. MIRTAZAPINE. [Suspect]
     Active Substance: MIRTAZAPINE
     Indication: PRODUCT USED FOR UNKNOWN INDICATION
     Dosage: 30 MG, QD
     Route: 065
  26. MAPROTILINE [Suspect]
     Active Substance: MAPROTILINE
     Indication: PRODUCT USED FOR UNKNOWN INDICATION
     Route: 065
  27. ZOLPIDEM [Suspect]
     Active Substance: ZOLPIDEM TARTRATE
     Indication: INSOMNIA
     Route: 065
  28. CLOMIPRAMIN [Suspect]
     Active Substance: CLOMIPRAMINE
     Dosage: 25 UNK
     Route: 042
  29. ZOLPIDEM [Suspect]
     Active Substance: ZOLPIDEM TARTRATE
     Dosage: UNK
     Route: 065
  30. TOPIRAMATE. [Suspect]
     Active Substance: TOPIRAMATE
     Indication: THROMBOSIS PROPHYLAXIS
     Dosage: UNK
     Route: 065

REACTIONS (21)
  - Weight decreased [Unknown]
  - Decreased interest [Unknown]
  - Depressed mood [Unknown]
  - Disturbance in attention [Unknown]
  - Abdominal discomfort [Unknown]
  - Tremor [Unknown]
  - Dizziness [Unknown]
  - Sleep disorder [Unknown]
  - Restlessness [Unknown]
  - Hypotension [Unknown]
  - Suicidal ideation [Unknown]
  - Tachycardia [Unknown]
  - Decreased activity [Unknown]
  - Nausea [Unknown]
  - Drug ineffective [Unknown]
  - Decreased appetite [Unknown]
  - Chest discomfort [Unknown]
  - Feeling abnormal [Unknown]
  - Palpitations [Unknown]
  - Fracture [Unknown]
  - Depression [Unknown]

NARRATIVE: CASE EVENT DATE: 2014
